FAERS Safety Report 4325897-5 (Version None)
Quarter: 2004Q1

REPORT INFORMATION
  Report Type: 
  Country: None (occurrence: None)
  Receive Date: 20040324
  Receipt Date: 20040312
  Transmission Date: 20041129
  Serious: Yes (Other)
  Sender: FDA-Public Use
  Company Number: US-JNJFOC-20040303216

PATIENT
  Age: 64 Year
  Sex: Female
  Weight: 74.3899 kg

DRUGS (6)
  1. INFLIXIMAB (INFLIXIMAB, RECOMBINANT) LYOPHILIZED POWDER [Suspect]
     Indication: RHEUMATOID ARTHRITIS
     Dosage: INTRAVENOUS
     Route: 042
     Dates: start: 20020327
  2. VIOXX [Concomitant]
  3. METHOTREXATE [Concomitant]
  4. PREMARIN [Concomitant]
  5. FLOTX (ALL OTHER THERAPEUTIC PRODUCTS) [Concomitant]
  6. CENTRUM (CENTRUM) [Concomitant]

REACTIONS (1)
  - LUPUS-LIKE SYNDROME [None]
